FAERS Safety Report 11605037 (Version 4)
Quarter: 2016Q4

REPORT INFORMATION
  Report Type: Spontaneous
  Country: US (occurrence: US)
  Receive Date: 20151007
  Receipt Date: 20161130
  Transmission Date: 20170206
  Serious: Yes (Hospitalization)
  Sender: FDA-Public Use
  Company Number: US-PFIZER INC-2015332104

PATIENT
  Age: 75 Year
  Sex: Female
  Weight: 91 kg

DRUGS (13)
  1. PRESERVISION AREDS 2 [Concomitant]
     Dosage: 1 TABLET, 2X/DAY
     Route: 048
  2. COMBIVENT RESPIMAT [Concomitant]
     Active Substance: ALBUTEROL SULFATE\IPRATROPIUM BROMIDE
     Dosage: 20 MCG-100 MCG/INH INHALATION AEROSOL, 1 PUFF, INHALATION, 4 TIMES A DAY
     Route: 055
  3. FERROUS SULFATE. [Concomitant]
     Active Substance: FERROUS SULFATE
     Dosage: 325 MG, DAILY
     Route: 048
  4. ZYRTEC [Concomitant]
     Active Substance: CETIRIZINE HYDROCHLORIDE
     Dosage: 10 MG, DAILY
     Route: 048
  5. SYSTANE BALANCE [Concomitant]
     Active Substance: PROPYLENE GLYCOL
     Dosage: 1 DROP, EYES, BOTH, EVERY 4 HOURS, AS NEEDED
     Route: 047
  6. LEVOTHYROXINE. [Concomitant]
     Active Substance: LEVOTHYROXINE
     Dosage: 150 UG, DAILY
     Route: 048
  7. DILTIAZEM HCL CD [Concomitant]
     Active Substance: DILTIAZEM HYDROCHLORIDE
     Dosage: 120 MG, DAILY
     Route: 048
  8. CARDIZEM [Concomitant]
     Active Substance: DILTIAZEM HYDROCHLORIDE
     Indication: ATRIAL FIBRILLATION
     Dosage: 120 MG, UNK
  9. FLONASE [Concomitant]
     Active Substance: FLUTICASONE PROPIONATE
     Dosage: 50 MCG/INH NASAL SPRAY; 1 SPRAYS, NARES, BOTH, 2 TIMES A DAY
     Route: 045
  10. REVATIO [Suspect]
     Active Substance: SILDENAFIL CITRATE
     Indication: PULMONARY HYPERTENSION
     Dosage: 20 MG, 3X/DAY (20 MG 1 TABLET THREE TIMES DAILY)
     Route: 048
  11. TORSEMIDE. [Concomitant]
     Active Substance: TORSEMIDE
     Dosage: 20 MG, DAILY
     Route: 048
  12. ICAPS AREDS [Concomitant]
     Active Substance: MINERALS\VITAMINS
     Dosage: 1 CAPSULE, 2 TIMES A DAY
     Route: 048
  13. COLACE [Concomitant]
     Active Substance: DOCUSATE SODIUM
     Dosage: UNK , 2X/DAY
     Route: 048

REACTIONS (3)
  - Haemoglobin decreased [Unknown]
  - Blood test abnormal [Unknown]
  - Erythema [Not Recovered/Not Resolved]
